FAERS Safety Report 18919875 (Version 1)
Quarter: 2021Q1

REPORT INFORMATION
  Report Type: Spontaneous
  Country: CZ (occurrence: CZ)
  Receive Date: 20210222
  Receipt Date: 20210222
  Transmission Date: 20210420
  Serious: Yes (Other)
  Sender: FDA-Public Use
  Company Number: CZ-BRISTOL-MYERS SQUIBB COMPANY-BMS-2021-012827

PATIENT
  Age: 10 Year
  Sex: Female

DRUGS (5)
  1. POSACONAZOLE [Suspect]
     Active Substance: POSACONAZOLE
     Indication: ACUTE MYELOID LEUKAEMIA
     Dosage: 5.2 MG/KG DAILY; WITH CONTROLLED RELEASE
     Route: 048
  2. ETOPOSIDE. [Suspect]
     Active Substance: ETOPOSIDE
     Indication: ACUTE MYELOID LEUKAEMIA
     Route: 065
  3. CYTOSAR [Suspect]
     Active Substance: CYTARABINE
     Indication: ACUTE MYELOID LEUKAEMIA
     Route: 065
  4. DASATINIB. [Suspect]
     Active Substance: DASATINIB
     Indication: ACUTE MYELOID LEUKAEMIA
     Route: 065
  5. IDARUBICINE [Suspect]
     Active Substance: IDARUBICIN
     Indication: ACUTE MYELOID LEUKAEMIA
     Route: 065

REACTIONS (8)
  - Pancytopenia [Recovered/Resolved]
  - Systemic candida [Recovered/Resolved]
  - Abdominal pain upper [Recovered/Resolved]
  - Febrile neutropenia [Recovered/Resolved]
  - Haematemesis [Recovered/Resolved]
  - Mucosal inflammation [Recovered/Resolved]
  - Neutropenic colitis [Recovered/Resolved]
  - Gastrointestinal toxicity [Recovered/Resolved]
